FAERS Safety Report 7726094-3 (Version None)
Quarter: 2011Q3

REPORT INFORMATION
  Report Type: 
  Country: None (occurrence: None)
  Receive Date: 20110902
  Receipt Date: 20110824
  Transmission Date: 20111222
  Serious: Yes (Other)
  Sender: FDA-Public Use
  Company Number: US-AMGEN-USASP2011043365

PATIENT
  Age: 21 Year
  Sex: Male

DRUGS (1)
  1. ENBREL [Suspect]
     Indication: PSORIASIS
     Dosage: 50 MG, 2 TIMES/WK
     Dates: start: 20110822

REACTIONS (3)
  - DYSPNOEA [None]
  - DIZZINESS [None]
  - ALTERED STATE OF CONSCIOUSNESS [None]
